FAERS Safety Report 9896047 (Version 2)
Quarter: 2014Q1

REPORT INFORMATION
  Report Type: Spontaneous
  Country: US (occurrence: US)
  Receive Date: 20140213
  Receipt Date: 20140213
  Transmission Date: 20141002
  Serious: No
  Sender: FDA-Public Use
  Company Number: US-BRISTOL-MYERS SQUIBB COMPANY-19015460

PATIENT
  Age: 53 Year
  Sex: Male
  Weight: 97.5 kg

DRUGS (1)
  1. ABATACEPT SUBQ INJECTION 125MG/ML [Suspect]
     Indication: RHEUMATOID ARTHRITIS
     Dosage: SECOND INJECTION WAS ON 10JUN2013.
     Route: 058
     Dates: start: 201305

REACTIONS (4)
  - Heart rate increased [Unknown]
  - Insomnia [Unknown]
  - Nervousness [Unknown]
  - Dyspnoea [Unknown]
